FAERS Safety Report 9853483 (Version 1)
Quarter: 2014Q1

REPORT INFORMATION
  Report Type: Spontaneous
  Country: AT (occurrence: AT)
  Receive Date: 20140129
  Receipt Date: 20140129
  Transmission Date: 20141002
  Serious: Yes (Disabling, Other)
  Sender: FDA-Public Use
  Company Number: AT-ACTAVIS-2014-00785

PATIENT
  Age: 60 Year
  Sex: Female

DRUGS (3)
  1. OXALIPLATIN (UNKNOWN) [Suspect]
     Indication: COLON CANCER
     Dosage: UNK
     Route: 042
  2. PREDNISOLONE (UNKNOWN) [Interacting]
     Indication: LARYNGOSPASM
     Dosage: 250 MG, UNKNOWN
     Route: 042
  3. PREDNISOLONE (UNKNOWN) [Interacting]
     Indication: BRONCHOSPASM

REACTIONS (13)
  - Respiratory failure [Recovered/Resolved]
  - Ataxia [Unknown]
  - Electrolyte imbalance [Recovered/Resolved]
  - Laryngospasm [Recovered/Resolved]
  - Bronchospasm [Recovered/Resolved]
  - Dropped head syndrome [Recovered/Resolved]
  - Muscular weakness [Unknown]
  - Eyelid ptosis [Unknown]
  - Dysphagia [Unknown]
  - Dysarthria [Unknown]
  - Hyporeflexia [Unknown]
  - Muscle spasms [Recovered/Resolved]
  - Drug interaction [Unknown]
